FAERS Safety Report 9251587 (Version 1)
Quarter: 2013Q2

REPORT INFORMATION
  Report Type: Spontaneous
  Country: BR (occurrence: BR)
  Receive Date: 20130424
  Receipt Date: 20130424
  Transmission Date: 20140414
  Serious: Yes (Hospitalization, Other)
  Sender: FDA-Public Use
  Company Number: PHHY2013BR038062

PATIENT
  Sex: Male

DRUGS (10)
  1. CERTICAN [Suspect]
     Dosage: 1.5 MG, BID PER DAY
     Route: 048
     Dates: start: 20121122
  2. CERTICAN [Suspect]
     Dosage: 0.75 MG, BID PER DAY
     Route: 048
     Dates: start: 20121226
  3. CERTICAN [Suspect]
     Dosage: 0.5 MG, BID PER DAY
     Route: 048
  4. CICLOSPORIN [Suspect]
     Dosage: UNK
     Dates: start: 201212
  5. FUROSEMIDE [Concomitant]
     Dosage: 2 DF, A DAY
     Route: 048
  6. CALCITRIOL [Concomitant]
     Dosage: 1 DF, A DAY
     Route: 048
  7. SIMVASTATIN [Concomitant]
     Dosage: 1 DF,  A DAY
     Route: 048
  8. CLOPIDOGREL [Concomitant]
     Dosage: 1 DF,  A DAY
     Route: 048
  9. OMEPRAZOLE [Concomitant]
     Dosage: 1 DF, A DAY
     Route: 048
  10. PREDNISONE [Concomitant]
     Dosage: UNK
     Route: 048

REACTIONS (8)
  - Urinary tract infection [Recovered/Resolved]
  - Gastroenteritis [Recovered/Resolved]
  - Nephrotic syndrome [Unknown]
  - Proteinuria [Unknown]
  - Nystagmus [Unknown]
  - Tremor [Unknown]
  - Blood cholesterol increased [Unknown]
  - Blood triglycerides increased [Unknown]
